FAERS Safety Report 16015918 (Version 2)
Quarter: 2019Q1

REPORT INFORMATION
  Report Type: Spontaneous
  Country: CZ (occurrence: CZ)
  Receive Date: 20190228
  Receipt Date: 20190314
  Transmission Date: 20190418
  Serious: Yes (Hospitalization, Other)
  Sender: FDA-Public Use
  Company Number: CZ-ACCORD-069647

PATIENT
  Age: 61 Year
  Sex: Male

DRUGS (9)
  1. PYRAZINAMIDE. [Suspect]
     Active Substance: PYRAZINAMIDE
     Indication: MENINGITIS TUBERCULOUS
     Dosage: DOSE REDUCED TO 1500 MG
  2. ISONIAZID. [Suspect]
     Active Substance: ISONIAZID
     Indication: MENINGITIS TUBERCULOUS
     Dosage: INITIAL DOSES WERE NOT REDUCED. DAILY DOSE 300 MG,
  3. ETHAMBUTOL [Suspect]
     Active Substance: ETHAMBUTOL HYDROCHLORIDE
     Indication: MENINGITIS TUBERCULOUS
     Dosage: DOSE REDUCED TO 1200 MG
  4. AMPICILLIN [Concomitant]
     Active Substance: AMPICILLIN
     Indication: LISTERIA ENCEPHALITIS
  5. STREPTOMYCIN [Suspect]
     Active Substance: STREPTOMYCIN\STREPTOMYCIN SULFATE
     Indication: TUBERCULOSIS
  6. ACICLOVIR [Concomitant]
     Active Substance: ACYCLOVIR
     Indication: ENCEPHALITIS
  7. LEVETIRACETAM. [Suspect]
     Active Substance: LEVETIRACETAM
     Indication: SEIZURE
     Dates: start: 2017, end: 2017
  8. RIFAMPICIN [Suspect]
     Active Substance: RIFAMPIN
     Indication: MENINGITIS TUBERCULOUS
     Dosage: DOSE REDUCED TO 450 MG
  9. CEFTRIAXONE/CEFTRIAXONE SODIUM [Concomitant]
     Indication: ENCEPHALITIS

REACTIONS (4)
  - Adverse event [Unknown]
  - Leukopenia [Recovered/Resolved]
  - Dermatitis allergic [Recovered/Resolved]
  - Lymphopenia [Recovered/Resolved]

NARRATIVE: CASE EVENT DATE: 201705
